FAERS Safety Report 18379375 (Version 1)
Quarter: 2020Q4

REPORT INFORMATION
  Report Type: Spontaneous
  Country: IT (occurrence: IT)
  Receive Date: 20201013
  Receipt Date: 20201013
  Transmission Date: 20210114
  Serious: Yes (Other)
  Sender: FDA-Public Use
  Company Number: IT-MYLANLABS-2020M1086716

PATIENT
  Age: 17 Year
  Sex: Male

DRUGS (2)
  1. ADALIMUMAB [Suspect]
     Active Substance: ADALIMUMAB
     Indication: COLITIS ULCERATIVE
     Dosage: 40 MILLIGRAM FOR 12 MONTHS
     Route: 065
  2. THALIDOMIDE [Concomitant]
     Active Substance: THALIDOMIDE
     Indication: COLITIS ULCERATIVE
     Route: 065

REACTIONS (3)
  - Henoch-Schonlein purpura [Recovered/Resolved]
  - Arthralgia [Unknown]
  - Proteinuria [Recovered/Resolved]
